FAERS Safety Report 4688087-2 (Version None)
Quarter: 2005Q2

REPORT INFORMATION
  Report Type: 
  Country: None (occurrence: None)
  Receive Date: 20050609
  Receipt Date: 20050531
  Transmission Date: 20051028
  Serious: Yes (Other)
  Sender: FDA-Public Use
  Company Number: 2005081394

PATIENT
  Sex: Male
  Weight: 80.7403 kg

DRUGS (3)
  1. DILANTIN KAPSEAL [Suspect]
     Indication: ILL-DEFINED DISORDER
     Dosage: 4 PER DAY ORAL
     Route: 048
  2. VITAMINS (VITAMINS) [Concomitant]
  3. DIURETICS (DIURETICS) [Concomitant]

REACTIONS (4)
  - BALANCE DISORDER [None]
  - HEARING IMPAIRED [None]
  - PAIN IN EXTREMITY [None]
  - VISUAL ACUITY REDUCED [None]
